FAERS Safety Report 4613148-3 (Version None)
Quarter: 2005Q1

REPORT INFORMATION
  Report Type: 
  Country: None (occurrence: None)
  Receive Date: 20050316
  Receipt Date: 20050224
  Transmission Date: 20050727
  Serious: Yes (Other)
  Sender: FDA-Public Use
  Company Number: USA041183526

PATIENT
  Age: 77 Year
  Sex: Female

DRUGS (2)
  1. FORTEO [Suspect]
     Indication: OSTEOPOROSIS
     Dates: start: 20040615
  2. CALCIUM GLUCONATE [Concomitant]

REACTIONS (11)
  - BLOOD ALBUMIN DECREASED [None]
  - HEPATIC STEATOSIS [None]
  - HEPATITIS C [None]
  - HEPATITIS C ANTIBODY POSITIVE [None]
  - INTERNATIONAL NORMALISED RATIO INCREASED [None]
  - MEAN CELL VOLUME INCREASED [None]
  - MEDICATION ERROR [None]
  - PHARMACEUTICAL PRODUCT COMPLAINT [None]
  - PLATELET COUNT DECREASED [None]
  - PROTEIN TOTAL DECREASED [None]
  - WHITE BLOOD CELL COUNT DECREASED [None]
